FAERS Safety Report 16597919 (Version 1)
Quarter: 2019Q3

REPORT INFORMATION
  Report Type: Spontaneous
  Country: US (occurrence: US)
  Receive Date: 20190606
  Receipt Date: 20190606
  Transmission Date: 20191004
  Serious: No
  Sender: FDA-Public Use
  Company Number: None

PATIENT

DRUGS (2)
  1. ROBINUL [Suspect]
     Active Substance: GLYCOPYRROLATE
  2. ROCURONIUM BROMIDE. [Suspect]
     Active Substance: ROCURONIUM BROMIDE

REACTIONS (3)
  - Circumstance or information capable of leading to medication error [None]
  - Device programming error [None]
  - Transcription medication error [None]
